FAERS Safety Report 9257577 (Version 1)
Quarter: 2013Q2

REPORT INFORMATION
  Report Type: Spontaneous
  Country: FR (occurrence: FR)
  Receive Date: 20130426
  Receipt Date: 20130426
  Transmission Date: 20140414
  Serious: Yes (Other)
  Sender: FDA-Public Use
  Company Number: FR-PFIZER INC-2013126066

PATIENT
  Age: 40 Year
  Sex: Female

DRUGS (1)
  1. TRIFLUCAN [Suspect]
     Indication: ORAL CANDIDIASIS
     Dosage: UNK

REACTIONS (1)
  - Toxic skin eruption [Unknown]
